FAERS Safety Report 4610623-2 (Version None)
Quarter: 2005Q1

REPORT INFORMATION
  Report Type: 
  Country: None (occurrence: None)
  Receive Date: 20050316
  Receipt Date: 20050307
  Transmission Date: 20050727
  Serious: Yes (Hospitalization, Other)
  Sender: FDA-Public Use
  Company Number: 05-03-0357

PATIENT
  Age: 54 Year
  Sex: Female

DRUGS (2)
  1. COLCHICINE W/PROBENECID INJECTABLE SOLUTION [Suspect]
     Indication: PAIN
     Dosage: 7 2MG DOSES INTRAVENOUS
     Route: 042
  2. CITALOPRAM HYDROBROMIDE [Concomitant]

REACTIONS (35)
  - ABDOMINAL PAIN [None]
  - ACUTE RESPIRATORY DISTRESS SYNDROME [None]
  - AGRANULOCYTOSIS [None]
  - ALOPECIA [None]
  - ASTHENIA [None]
  - BACTERAEMIA [None]
  - BLOOD CREATINE PHOSPHOKINASE INCREASED [None]
  - CONFUSIONAL STATE [None]
  - DIARRHOEA [None]
  - DIASTOLIC DYSFUNCTION [None]
  - DISSEMINATED INTRAVASCULAR COAGULATION [None]
  - DRUG LEVEL INCREASED [None]
  - DYSPNOEA EXERTIONAL [None]
  - GLOSSODYNIA [None]
  - HEPATOCELLULAR DAMAGE [None]
  - HYPOCALCAEMIA [None]
  - HYPOPHOSPHATAEMIA [None]
  - HYPOTENSION [None]
  - ILEUS PARALYTIC [None]
  - METABOLIC ACIDOSIS [None]
  - MUCOSAL INFLAMMATION [None]
  - MYALGIA [None]
  - MYOPATHY [None]
  - NEUROPATHY [None]
  - PANCYTOPENIA [None]
  - PARAESTHESIA [None]
  - PHARYNGOLARYNGEAL PAIN [None]
  - PULMONARY ARTERIAL WEDGE PRESSURE INCREASED [None]
  - PYREXIA [None]
  - RENAL FAILURE ACUTE [None]
  - TRANSAMINASES INCREASED [None]
  - TROPONIN INCREASED [None]
  - VENTRICULAR DYSFUNCTION [None]
  - VENTRICULAR HYPOKINESIA [None]
  - VOMITING [None]
